FAERS Safety Report 6008225-9 (Version None)
Quarter: 2008Q4

REPORT INFORMATION
  Report Type: 
  Country: None (occurrence: None)
  Receive Date: 20081217
  Receipt Date: 20081008
  Transmission Date: 20090506
  Serious: No
  Sender: FDA-Public Use
  Company Number: US-ASTRAZENECA-2008UW15655

PATIENT
  Age: 30 Year
  Sex: Female

DRUGS (1)
  1. CRESTOR [Suspect]
     Dosage: 20 MG
     Route: 048

REACTIONS (1)
  - CHEST PAIN [None]
